FAERS Safety Report 11944677 (Version 3)
Quarter: 2016Q2

REPORT INFORMATION
  Report Type: Report from Study
  Country: JP (occurrence: JP)
  Receive Date: 20160125
  Receipt Date: 20160414
  Transmission Date: 20160815
  Serious: Yes (Other)
  Sender: FDA-Public Use
  Company Number: JP-TEVA-628575ISR

PATIENT
  Age: 65 Year
  Sex: Male
  Weight: 71 kg

DRUGS (11)
  1. BAYASPIRIN (ACETYLSALICYLIC ACID) TABLET [Suspect]
     Active Substance: ASPIRIN
     Dosage: 100 MILLIGRAM DAILY; ONGOING
     Route: 048
  2. BENZBROMARONE (BENZBROMARONE) TABLET [Concomitant]
     Dosage: ONGOING
     Dates: start: 20151221
  3. BAYASPIRIN (ACETYLSALICYLIC ACID) TABLET [Suspect]
     Active Substance: ASPIRIN
     Indication: ANGINA PECTORIS
     Dosage: 100 MILLIGRAM DAILY;
     Route: 048
     Dates: start: 20151221, end: 20160115
  4. SIGMART (NICORANDIL) TABLET [Suspect]
     Active Substance: NICORANDIL
     Indication: ANGINA PECTORIS
     Dosage: 15 MILLIGRAM DAILY;
     Route: 048
     Dates: start: 20151221, end: 20160115
  5. CRESTOR [Concomitant]
     Active Substance: ROSUVASTATIN CALCIUM
     Dosage: ONGOING
     Dates: start: 20151221
  6. RASAGILINE MESILATE [Suspect]
     Active Substance: RASAGILINE MESYLATE
     Indication: PARKINSON^S DISEASE
     Dosage: 1 MILLIGRAM DAILY; OL EXTENTION PHASE
     Route: 048
     Dates: start: 20151127, end: 20160115
  7. SIGMART (NICORANDIL) TABLET [Suspect]
     Active Substance: NICORANDIL
     Dosage: 15 MILLIGRAM DAILY; ONGOING
     Route: 048
  8. JANUVIA (SITAGLIPTIN PHOSPHATE) TABLET [Concomitant]
     Dates: start: 20151221, end: 20160115
  9. GLUBES (MITIGLINIDE CALCIUM, VOGLIBOSE) TABLET [Concomitant]
     Dosage: ONGOING
     Dates: start: 20151221
  10. RASAGILINE MESILATE [Suspect]
     Active Substance: RASAGILINE MESYLATE
     Dosage: DB PHASE: TVP-1012 1 MG OR PLACEBO
     Route: 048
     Dates: start: 20150524
  11. RIVOTRIL (CLONAZEPAM) TABLET [Concomitant]
     Dosage: ONGOING

REACTIONS (1)
  - Hepatic function abnormal [Recovered/Resolved]

NARRATIVE: CASE EVENT DATE: 20160109
